FAERS Safety Report 9742075 (Version 1)
Quarter: 2013Q4

REPORT INFORMATION
  Report Type: Report from Study
  Country: US (occurrence: US)
  Receive Date: 20131210
  Receipt Date: 20131210
  Transmission Date: 20140711
  Serious: Yes (Death)
  Sender: FDA-Public Use
  Company Number: US-ROCHE-1317355

PATIENT
  Sex: Male

DRUGS (11)
  1. AVASTIN [Suspect]
     Indication: LUNG NEOPLASM MALIGNANT
     Dosage: 1200 MG SHORT OVER 30 MINUTES
     Route: 042
     Dates: start: 20110809, end: 20110809
  2. AVASTIN [Suspect]
     Dosage: 1200 MG SHORT OVER 30 MINUTES
     Route: 042
     Dates: start: 20110830, end: 20110830
  3. ALIMTA [Concomitant]
     Indication: LUNG ADENOCARCINOMA
     Dosage: DAILY SHOT OVER 10 MINUTEA FOR 1 DAY IN NORMAL SALINE SOLUTION
     Route: 042
     Dates: start: 20110809, end: 20110809
  4. ALIMTA [Concomitant]
     Dosage: DAILY SHOT OVER 10 MINUTEA FOR 1 DAY IN NORMAL SALINE SOLUTION
     Route: 042
     Dates: start: 20110830, end: 20110830
  5. DEXAMETHASONE SODIUM PHOSPHATE [Concomitant]
     Route: 042
     Dates: start: 20110809, end: 20110809
  6. PALONOSETRON HYDROCHLORIDE [Concomitant]
     Dosage: DAILY INTRAVENOUS PUSH FOR 1 DAY
     Route: 042
     Dates: start: 20110809, end: 20110809
  7. PALONOSETRON HYDROCHLORIDE [Concomitant]
     Dosage: DAILY INTRAVENOUS PUSH FOR 1 DAY
     Route: 042
     Dates: start: 20110830, end: 20110830
  8. SODIUM CHLORIDE [Concomitant]
     Dosage: DAILY INTERMITTENT FOR 1 DAY
     Route: 042
     Dates: start: 20110809, end: 20110809
  9. SODIUM CHLORIDE [Concomitant]
     Dosage: DAILY INTERMITTENT FOR 1 DAY
     Route: 042
     Dates: start: 20110830, end: 20110830
  10. SOLU-MEDROL [Concomitant]
     Dosage: ONCE
     Route: 042
     Dates: start: 20110830, end: 20110830
  11. CYANOCOBALAMIN [Concomitant]
     Dosage: FOR 6 DOSES
     Route: 042
     Dates: start: 20110830, end: 20110830

REACTIONS (1)
  - Death [Fatal]
